FAERS Safety Report 6579101-8 (Version None)
Quarter: 2010Q1

REPORT INFORMATION
  Report Type: 
  Country: None (occurrence: None)
  Receive Date: 20100212
  Receipt Date: 20100202
  Transmission Date: 20100710
  Serious: No
  Sender: FDA-Public Use
  Company Number: US-DENTSPLY-2010-0012-EUR

PATIENT
  Sex: Female

DRUGS (1)
  1. XYLOCAINE DENTAL [Suspect]
     Indication: ANAESTHESIA PROCEDURE
     Dates: start: 20060622, end: 20060622

REACTIONS (7)
  - DROOLING [None]
  - DYSARTHRIA [None]
  - EYE PRURITUS [None]
  - EYELID FUNCTION DISORDER [None]
  - EYELID PTOSIS [None]
  - HYPOAESTHESIA FACIAL [None]
  - INJECTION SITE PAIN [None]
